FAERS Safety Report 6544462-2 (Version None)
Quarter: 2010Q1

REPORT INFORMATION
  Report Type: 
  Country: None (occurrence: None)
  Receive Date: 20100121
  Receipt Date: 20100113
  Transmission Date: 20100710
  Serious: Yes (Other)
  Sender: FDA-Public Use
  Company Number: US-ROCHE-465831

PATIENT
  Sex: Female
  Weight: 54 kg

DRUGS (5)
  1. BONIVA [Suspect]
     Indication: OSTEOPOROSIS PROPHYLAXIS
     Route: 048
     Dates: start: 20060621, end: 20060801
  2. SYNTHROID [Concomitant]
     Indication: HYPOTHYROIDISM
     Route: 048
  3. VITAMIN B-12 [Concomitant]
     Indication: PERNICIOUS ANAEMIA
     Route: 030
     Dates: start: 19560101
  4. CALCIUM [Concomitant]
     Indication: OSTEOPOROSIS PROPHYLAXIS
     Dosage: DOSAGE REGIMEN: DAILY.
     Route: 048
  5. ZEGERID [Concomitant]
     Indication: GASTRIC DISORDER
     Route: 048

REACTIONS (7)
  - ARTHRALGIA [None]
  - MUSCULAR WEAKNESS [None]
  - MYALGIA [None]
  - NERVE INJURY [None]
  - NIGHTMARE [None]
  - PERIPHERAL COLDNESS [None]
  - WEIGHT DECREASED [None]
